FAERS Safety Report 18350462 (Version 2)
Quarter: 2020Q4

REPORT INFORMATION
  Report Type: Spontaneous
  Country: BE (occurrence: BE)
  Receive Date: 20201006
  Receipt Date: 20201105
  Transmission Date: 20210114
  Serious: Yes (Other)
  Sender: FDA-Public Use
  Company Number: NVSC2020BE173975

PATIENT
  Age: 73 Year
  Sex: Male
  Weight: 93.2 kg

DRUGS (22)
  1. ETOPOSIDE. [Suspect]
     Active Substance: ETOPOSIDE
     Indication: NON-SMALL CELL LUNG CANCER
     Dosage: UNK
     Route: 065
  2. AKYNZEO [Concomitant]
     Active Substance: NETUPITANT\PALONOSETRON HYDROCHLORIDE
     Dosage: 300.5 MG
     Route: 065
     Dates: start: 20200414, end: 20200414
  3. DEXAMETHASONE. [Concomitant]
     Active Substance: DEXAMETHASONE
     Dosage: 12 MG
     Route: 065
     Dates: start: 20200217, end: 20200217
  4. CARBOPLATIN. [Suspect]
     Active Substance: CARBOPLATIN
     Indication: NON-SMALL CELL LUNG CANCER
     Dosage: UNK
     Route: 065
  5. TAMSULOSIN [Concomitant]
     Active Substance: TAMSULOSIN
     Indication: PRODUCT USED FOR UNKNOWN INDICATION
     Dosage: UNK
     Route: 065
  6. AKYNZEO [Concomitant]
     Active Substance: NETUPITANT\PALONOSETRON HYDROCHLORIDE
     Indication: PRODUCT USED FOR UNKNOWN INDICATION
     Dosage: 300.5 MG
     Route: 065
     Dates: start: 20200120, end: 20200120
  7. ATEZOLIZUMAB. [Suspect]
     Active Substance: ATEZOLIZUMAB
     Dosage: 1200 MG, TIW
     Route: 041
     Dates: start: 20200217
  8. ATEZOLIZUMAB. [Suspect]
     Active Substance: ATEZOLIZUMAB
     Dosage: 1200 MG, TIW
     Route: 041
     Dates: start: 20200414
  9. ZOLADEX [Concomitant]
     Active Substance: GOSERELIN ACETATE
     Indication: PROSTATE CANCER
     Dosage: UNK
     Route: 065
     Dates: start: 20190122
  10. ATEZOLIZUMAB. [Suspect]
     Active Substance: ATEZOLIZUMAB
     Dosage: 1200 MG
     Route: 042
     Dates: start: 20200120
  11. ATEZOLIZUMAB. [Suspect]
     Active Substance: ATEZOLIZUMAB
     Dosage: 1200 MG, TIW
     Route: 041
     Dates: start: 20200316
  12. ZOLPIDEM [Concomitant]
     Active Substance: ZOLPIDEM TARTRATE
     Indication: ANXIETY
     Dosage: UNK, QD
     Route: 065
     Dates: start: 20200316
  13. MOVICOL [Concomitant]
     Active Substance: POLYETHYLENE GLYCOL 3350\POTASSIUM CHLORIDE\SODIUM BICARBONATE\SODIUM CHLORIDE
     Indication: CONSTIPATION
     Dosage: UNK, PRN
     Route: 065
     Dates: start: 20200219
  14. ASAFLOW [Concomitant]
     Active Substance: ASPIRIN
     Dosage: UNK, QD
     Route: 065
     Dates: start: 2015
  15. DEXAMETHASONE. [Concomitant]
     Active Substance: DEXAMETHASONE
     Indication: PRODUCT USED FOR UNKNOWN INDICATION
     Dosage: 12 MG
     Route: 065
     Dates: start: 20200120, end: 20200120
  16. AKYNZEO [Concomitant]
     Active Substance: NETUPITANT\PALONOSETRON HYDROCHLORIDE
     Dosage: 300.5 MG
     Route: 065
     Dates: start: 20200217, end: 20200217
  17. AKYNZEO [Concomitant]
     Active Substance: NETUPITANT\PALONOSETRON HYDROCHLORIDE
     Dosage: 300.5 MG
     Route: 065
     Dates: start: 20200316, end: 20200316
  18. ATEZOLIZUMAB. [Suspect]
     Active Substance: ATEZOLIZUMAB
     Indication: NON-SMALL CELL LUNG CANCER
     Dosage: 1200 MG, TIW
     Route: 041
     Dates: start: 20200120
  19. L-THYROXINE [Concomitant]
     Active Substance: LEVOTHYROXINE
     Indication: HYPOTHYROIDISM
     Dosage: UNK
     Route: 065
     Dates: start: 20170328
  20. ASAFLOW [Concomitant]
     Active Substance: ASPIRIN
     Indication: PROPHYLAXIS
     Dosage: UNK
     Route: 065
     Dates: start: 2017
  21. DEXAMETHASONE. [Concomitant]
     Active Substance: DEXAMETHASONE
     Dosage: 12 MG
     Route: 065
     Dates: start: 20200316, end: 20200316
  22. DEXAMETHASONE. [Concomitant]
     Active Substance: DEXAMETHASONE
     Dosage: 12 MG
     Route: 065
     Dates: start: 20200414, end: 20200414

REACTIONS (2)
  - Carpal tunnel syndrome [Recovered/Resolved]
  - Neutropenia [Recovered/Resolved]

NARRATIVE: CASE EVENT DATE: 20200210
